FAERS Safety Report 18702690 (Version 1)
Quarter: 2021Q1

REPORT INFORMATION
  Report Type: Spontaneous
  Country: ES (occurrence: ES)
  Receive Date: 20210105
  Receipt Date: 20210105
  Transmission Date: 20210419
  Serious: Yes (Other)
  Sender: FDA-Public Use
  Company Number: NVSC2020ES346949

PATIENT
  Age: 76 Year
  Sex: Male
  Weight: 81 kg

DRUGS (3)
  1. LOPINAVIR + RITONAVIR [Interacting]
     Active Substance: LOPINAVIR\RITONAVIR
     Indication: COVID-19
     Dosage: 400 MG, Q12H (PRIMER DIA, LUEGO 200MG CADA 12 HORAS)
     Route: 048
     Dates: start: 20200421
  2. AZITROMICINA [Interacting]
     Active Substance: AZITHROMYCIN DIHYDRATE
     Indication: COVID-19
     Dosage: 500 MG, QD (EL PRIMER D?A, LUEGO 250MG/DIA)
     Route: 048
     Dates: start: 20200421
  3. HYDROXYCHLOROQUINE [Suspect]
     Active Substance: HYDROXYCHLOROQUINE
     Indication: COVID-19
     Route: 048
     Dates: start: 20200421

REACTIONS (1)
  - Long QT syndrome [Recovered/Resolved]

NARRATIVE: CASE EVENT DATE: 20200423
